FAERS Safety Report 10753939 (Version 2)
Quarter: 2015Q3

REPORT INFORMATION
  Report Type: Spontaneous
  Country: US (occurrence: None)
  Receive Date: 20150129
  Receipt Date: 20150706
  Transmission Date: 20151125
  Serious: Yes (Hospitalization)
  Sender: FDA-Public Use
  Company Number: US-001366

PATIENT
  Age: 76 Year
  Sex: Female

DRUGS (9)
  1. SYNTHROID [Concomitant]
     Active Substance: LEVOTHYROXINE SODIUM
  2. SYNTHROID [Concomitant]
     Active Substance: LEVOTHYROXINE SODIUM
  3. PEPCID [Concomitant]
     Active Substance: FAMOTIDINE
  4. TEDUGLUTIDE [Suspect]
     Active Substance: TEDUGLUTIDE
     Indication: SHORT-BOWEL SYNDROME
     Dosage: DF
     Route: 058
     Dates: start: 201410, end: 201412
  5. AMBIEN [Concomitant]
     Active Substance: ZOLPIDEM TARTRATE
  6. SOLUTIONS FOR PARENTERAL NUTRITION [Concomitant]
     Active Substance: AMINO ACIDS\DEXTROSE\ELECTROLYTES NOS
  7. BUTORPHANOL [Concomitant]
     Active Substance: BUTORPHANOL
  8. URSODIOL. [Concomitant]
     Active Substance: URSODIOL
  9. NASCOBAL [Concomitant]
     Active Substance: CYANOCOBALAMIN

REACTIONS (6)
  - Stoma site haemorrhage [None]
  - Stoma complication [None]
  - Stoma site reaction [None]
  - Cholecystitis [None]
  - Stoma site pain [None]
  - Gastrointestinal stoma complication [None]

NARRATIVE: CASE EVENT DATE: 20141016
